FAERS Safety Report 4417504-8 (Version None)
Quarter: 2004Q3

REPORT INFORMATION
  Report Type: 
  Country: None (occurrence: None)
  Receive Date: 20040804
  Receipt Date: 20040717
  Transmission Date: 20050211
  Serious: No
  Sender: FDA-Public Use
  Company Number: 2004048502

PATIENT
  Age: 70 Year
  Sex: Male
  Weight: 97.5234 kg

DRUGS (1)
  1. ROGAINE [Suspect]
     Indication: ALOPECIA
     Dosage: 2 SPRAYS, PRN, TOPICAL
     Route: 061

REACTIONS (4)
  - ACCIDENTAL EXPOSURE [None]
  - CATARACT [None]
  - MEDICATION ERROR [None]
  - VISION BLURRED [None]
